FAERS Safety Report 6698306-9 (Version None)
Quarter: 2010Q2

REPORT INFORMATION
  Report Type: 
  Country: None (occurrence: None)
  Receive Date: 20100427
  Receipt Date: 20100416
  Transmission Date: 20101027
  Serious: Yes (Death, Hospitalization, Other)
  Sender: FDA-Public Use
  Company Number: US-AMGEN-US353588

PATIENT
  Sex: Male
  Weight: 90.6 kg

DRUGS (12)
  1. NPLATE [Suspect]
     Indication: MYELODYSPLASTIC SYNDROME
     Route: 058
     Dates: start: 20090415, end: 20091001
  2. AZACITIDINE [Concomitant]
     Route: 058
     Dates: start: 20090401
  3. AMICAR [Concomitant]
     Route: 048
  4. VIDARABINE [Concomitant]
  5. LEVAQUIN [Concomitant]
  6. FLUCONAZOLE [Concomitant]
  7. DAPTOMYCIN [Concomitant]
  8. PLATELETS [Concomitant]
  9. BLOOD CELLS, PACKED HUMAN [Concomitant]
     Dates: start: 20090413
  10. DESFERAL [Concomitant]
  11. METOPROLOL [Concomitant]
  12. CYTARABINE [Concomitant]

REACTIONS (7)
  - ACUTE MYELOID LEUKAEMIA [None]
  - BLAST CELL COUNT INCREASED [None]
  - CHRONIC MYELOID LEUKAEMIA [None]
  - DEPRESSION [None]
  - DYSURIA [None]
  - OEDEMA PERIPHERAL [None]
  - VENOUS THROMBOSIS [None]
